FAERS Safety Report 8136505-X (Version None)
Quarter: 2012Q1

REPORT INFORMATION
  Report Type: 
  Country: None (occurrence: None)
  Receive Date: 20120209
  Receipt Date: 20120127
  Transmission Date: 20120608
  Serious: Yes (Hospitalization, Other)
  Sender: FDA-Public Use
  Company Number: DSA_54645_2012

PATIENT
  Age: 70 Year
  Sex: Female

DRUGS (1)
  1. DILTIAZEM HYDROCHLORIDE [Suspect]
     Indication: PRODUCT USED FOR UNKNOWN INDICATION
     Dosage: (DF ORAL)
     Route: 048

REACTIONS (8)
  - METABOLIC ACIDOSIS [None]
  - HYPOXIA [None]
  - NO THERAPEUTIC RESPONSE [None]
  - SHOCK [None]
  - POISONING [None]
  - OVERDOSE [None]
  - LACTIC ACIDOSIS [None]
  - HYPOGLYCAEMIA [None]
